FAERS Safety Report 14423779 (Version 2)
Quarter: 2018Q2

REPORT INFORMATION
  Report Type: Spontaneous
  Country: US (occurrence: US)
  Receive Date: 20180123
  Receipt Date: 20180402
  Transmission Date: 20180711
  Serious: Yes (Other)
  Sender: FDA-Public Use
  Company Number: US-PFIZER INC-2015041735

PATIENT
  Age: 61 Year
  Sex: Female

DRUGS (4)
  1. XELJANZ [Suspect]
     Active Substance: TOFACITINIB CITRATE
     Dosage: 5 MG, THREE TIMES A DAY
     Route: 048
  2. XELJANZ [Suspect]
     Active Substance: TOFACITINIB CITRATE
     Dosage: 5 MG, UNK
  3. XELJANZ [Suspect]
     Active Substance: TOFACITINIB CITRATE
     Dosage: 15 MG, DAILY
  4. XELJANZ [Suspect]
     Active Substance: TOFACITINIB CITRATE
     Indication: ALOPECIA AREATA
     Dosage: 10 MG, DAILY

REACTIONS (4)
  - Malaise [Unknown]
  - Incorrect dose administered [Unknown]
  - Thrombosis [Unknown]
  - Product use in unapproved indication [Unknown]
